FAERS Safety Report 7366674-0 (Version None)
Quarter: 2011Q1

REPORT INFORMATION
  Report Type: 
  Country: None (occurrence: None)
  Receive Date: 20110310
  Receipt Date: 20110228
  Transmission Date: 20110831
  Serious: Yes (Hospitalization)
  Sender: FDA-Public Use
  Company Number: 2011MA001973

PATIENT
  Age: 6 Year
  Sex: Male

DRUGS (3)
  1. DIAZEPAM [Suspect]
     Indication: PRODUCT USED FOR UNKNOWN INDICATION
     Dosage: 10 MG; QD; RTL
     Route: 054
     Dates: start: 20100520, end: 20100520
  2. ROCEPHIN [Concomitant]
  3. DEPAKENE [Concomitant]

REACTIONS (3)
  - SOPOR [None]
  - DRUG ADMINISTRATION ERROR [None]
  - MEDICATION ERROR [None]
